FAERS Safety Report 15803740 (Version 2)
Quarter: 2019Q1

REPORT INFORMATION
  Report Type: Spontaneous
  Country: US (occurrence: US)
  Receive Date: 20190109
  Receipt Date: 20190122
  Transmission Date: 20190417
  Serious: No
  Sender: FDA-Public Use
  Company Number: US-ASTRAZENECA-2018SF46109

PATIENT
  Sex: Female

DRUGS (4)
  1. TRAMADOL. [Concomitant]
     Active Substance: TRAMADOL
  2. LIDOCAINE-PRILOCAINE [Concomitant]
     Active Substance: LIDOCAINE\PRILOCAINE
  3. LYNPARZA [Suspect]
     Active Substance: OLAPARIB
     Indication: OVARIAN CANCER
     Route: 048
     Dates: start: 20181030
  4. LYNPARZA [Suspect]
     Active Substance: OLAPARIB
     Indication: OVARIAN CANCER
     Route: 048

REACTIONS (7)
  - Product packaging issue [Unknown]
  - Product packaging quantity issue [Unknown]
  - Arthralgia [Unknown]
  - Nausea [Unknown]
  - Circumstance or information capable of leading to medication error [Unknown]
  - Neuropathy peripheral [Not Recovered/Not Resolved]
  - Product dose omission [Unknown]
